FAERS Safety Report 15298875 (Version 1)
Quarter: 2018Q3

REPORT INFORMATION
  Report Type: Other
  Country: FR (occurrence: FR)
  Receive Date: 20180821
  Receipt Date: 20180821
  Transmission Date: 20181010
  Serious: Yes (Hospitalization)
  Sender: FDA-Public Use
  Company Number: FR-DENTSPLY-2018SCDP000358

PATIENT
  Age: 83 Year
  Sex: Male
  Weight: 83 kg

DRUGS (15)
  1. VISIPAQUE [Suspect]
     Active Substance: IODIXANOL
     Indication: ARTERIOGRAM CORONARY
     Dosage: 150 ML TOTAL, (320 MG D^I/ML) SOLUTION INJECTABLE
     Route: 042
     Dates: start: 20180613, end: 20180613
  2. FUROSEMIDE. [Concomitant]
     Active Substance: FUROSEMIDE
     Indication: PRODUCT USED FOR UNKNOWN INDICATION
     Dosage: UNK
  3. ARAVA [Concomitant]
     Active Substance: LEFLUNOMIDE
     Indication: PRODUCT USED FOR UNKNOWN INDICATION
     Dosage: UNK
  4. EZETIMIBE. [Concomitant]
     Active Substance: EZETIMIBE
     Indication: PRODUCT USED FOR UNKNOWN INDICATION
     Dosage: UNK
  5. PLAVIX [Concomitant]
     Active Substance: CLOPIDOGREL BISULFATE
     Indication: PRODUCT USED FOR UNKNOWN INDICATION
     Dosage: UNK
  6. LEVOTHYROX [Concomitant]
     Active Substance: LEVOTHYROXINE
     Indication: PRODUCT USED FOR UNKNOWN INDICATION
     Dosage: UNK
  7. XYLOCAINE WITH ADRENALINE (EPINEPHRINE) [Suspect]
     Active Substance: EPINEPHRINE BITARTRATE\LIDOCAINE HYDROCHLORIDE
     Indication: ANAESTHESIA
     Dosage: 1 ML, TOTAL
     Route: 058
     Dates: start: 20180613, end: 20180613
  8. ISOPTINE [Suspect]
     Active Substance: VERAPAMIL HYDROCHLORIDE
     Indication: ARTERIOGRAM CORONARY
     Dosage: 2.5 MG TOTAL, (5 MG/2 ML) SOLUTION INJECTABLE
     Route: 013
     Dates: start: 20180613, end: 20180613
  9. HEPARINE                           /00027701/ [Suspect]
     Active Substance: HEPARIN SODIUM
     Indication: ARTERIOGRAM CORONARY
     Dosage: 500 IU, UNK
     Route: 013
     Dates: start: 20180613, end: 20180613
  10. CANDESARTAN CILEXETIL. [Concomitant]
     Active Substance: CANDESARTAN CILEXETIL
     Indication: PRODUCT USED FOR UNKNOWN INDICATION
     Dosage: UNK
  11. KARDEGIC [Concomitant]
     Active Substance: ASPIRIN DL-LYSINE
     Indication: PRODUCT USED FOR UNKNOWN INDICATION
     Dosage: 75 MG, POUDRE POUR SOLUTION BUVABLE EN SACHET?DOSE
  12. STAGID [Concomitant]
     Active Substance: METFORMIN PAMOATE
     Indication: PRODUCT USED FOR UNKNOWN INDICATION
     Dosage: COMPRIME SECABLE
  13. PREGABALINE [Concomitant]
     Active Substance: PREGABALIN
     Indication: PRODUCT USED FOR UNKNOWN INDICATION
     Dosage: UNK
  14. RISORDAN                           /00110502/ [Suspect]
     Active Substance: .ALPHA.-TOCOPHEROL ACETATE
     Indication: ARTERIOGRAM CORONARY
     Dosage: 1 MG, TOTAL
     Route: 022
     Dates: start: 20180613, end: 20180613
  15. PANTOPRAZOLE [Concomitant]
     Active Substance: PANTOPRAZOLE
     Indication: PRODUCT USED FOR UNKNOWN INDICATION
     Dosage: UNK

REACTIONS (1)
  - Anaphylactic reaction [Recovered/Resolved]

NARRATIVE: CASE EVENT DATE: 20180613
